FAERS Safety Report 18741063 (Version 2)
Quarter: 2021Q2

REPORT INFORMATION
  Report Type: Report from Study
  Country: DE (occurrence: DE)
  Receive Date: 20210114
  Receipt Date: 20210617
  Transmission Date: 20210717
  Serious: Yes (Hospitalization, Other)
  Sender: FDA-Public Use
  Company Number: DE-TAKEDA-2014BAX056499

PATIENT
  Age: 73 Year
  Weight: 100 kg

DRUGS (25)
  1. ADVATE [Suspect]
     Active Substance: ANTIHEMOPHILIC FACTOR, HUMAN RECOMBINANT
     Indication: FACTOR VIII DEFICIENCY
     Dosage: 3000IU (INTERNATIONAL UNIT)AS NEEDED
     Route: 065
     Dates: start: 20100504, end: 20140303
  2. SIMVASTATIN. [Concomitant]
     Active Substance: SIMVASTATIN
     Indication: HYPERCHOLESTEROLAEMIA
     Dosage: STARTED BEFORE STUDY BEGAN
     Route: 048
  3. CANDESARTAN. [Concomitant]
     Active Substance: CANDESARTAN
     Indication: HYPERTENSION
     Dosage: STARTED BEFORE STUDY BEGAN
     Route: 048
  4. SPIRONOLACTON [Concomitant]
     Active Substance: SPIRONOLACTONE
     Indication: HYPERTENSION
     Dosage: 0.5 /DAY, STARTED BEFORE STUDY BEGAN
     Route: 048
  5. MAGNESIUM [Concomitant]
     Active Substance: MAGNESIUM
     Indication: MUSCLE SPASMS
     Dosage: STARTED BEFORE STUDY BEGAN
     Route: 048
  6. GLIQUIDON [Concomitant]
     Indication: DIABETES MELLITUS
     Dosage: 30MILLIGRAM1X A DAY
     Route: 048
     Dates: start: 20100325, end: 20130124
  7. INSULIN LISPRO [Concomitant]
     Active Substance: INSULIN LISPRO
     Indication: DIABETES MELLITUS
     Dosage: 25?12?18/DAY, IU
     Route: 058
     Dates: start: 20130124
  8. ADVATE [Suspect]
     Active Substance: ANTIHEMOPHILIC FACTOR, HUMAN RECOMBINANT
     Indication: FACTOR VIII DEFICIENCY
     Dosage: 3000IU (INTERNATIONAL UNIT)AS NEEDED
     Route: 065
     Dates: start: 20100504, end: 20140303
  9. ADVATE [Suspect]
     Active Substance: ANTIHEMOPHILIC FACTOR, HUMAN RECOMBINANT
     Indication: PROPHYLAXIS
     Dosage: 3000 INTERNATIONAL UNIT, PRN
     Route: 065
     Dates: start: 20100503, end: 20160225
  10. ADVATE [Suspect]
     Active Substance: ANTIHEMOPHILIC FACTOR, HUMAN RECOMBINANT
     Indication: HAEMORRHAGE
     Dosage: 3000IU (INTERNATIONAL UNIT)AS NEEDED
     Route: 065
     Dates: start: 20100503, end: 20140303
  11. ADVATE [Suspect]
     Active Substance: ANTIHEMOPHILIC FACTOR, HUMAN RECOMBINANT
     Indication: HAEMORRHAGE
     Dosage: 3000IU (INTERNATIONAL UNIT)AS NEEDED
     Route: 065
     Dates: start: 20100503, end: 20140303
  12. ADVATE [Suspect]
     Active Substance: ANTIHEMOPHILIC FACTOR, HUMAN RECOMBINANT
     Indication: PROPHYLAXIS
     Dosage: 3000 INTERNATIONAL UNIT, PRN
     Route: 065
     Dates: start: 20100503, end: 20160225
  13. CYCLOCAPRON [Concomitant]
     Active Substance: TRANEXAMIC ACID
     Indication: HAEMORRHAGE
     Dosage: UNK
     Route: 048
     Dates: start: 2006
  14. CLOPIDOGREL [Concomitant]
     Active Substance: CLOPIDOGREL BISULFATE
     Indication: PRODUCT USED FOR UNKNOWN INDICATION
     Dosage: UNK
     Route: 048
     Dates: start: 20140515, end: 20140611
  15. LERCANIDIPIN [Concomitant]
     Active Substance: LERCANIDIPINE
     Indication: HYPERTENSION
     Dosage: STARTED BEFORE STUDY BEGAN
     Route: 048
  16. MAGNESIUM [Concomitant]
     Active Substance: MAGNESIUM
     Indication: MAGNESIUM DEFICIENCY
  17. BASIS INSULIN [Concomitant]
     Indication: DIABETES MELLITUS
     Dosage: 1X A DAY
     Route: 058
  18. ADVATE [Suspect]
     Active Substance: ANTIHEMOPHILIC FACTOR, HUMAN RECOMBINANT
     Indication: PROPHYLAXIS
     Dosage: 3000 INTERNATIONAL UNIT, PRN
     Route: 065
     Dates: start: 20100503, end: 20160225
  19. METOPROLOL. [Concomitant]
     Active Substance: METOPROLOL
     Indication: HYPERTENSION
     Dosage: 0.5 TWO TIMES DAILY,STARTED BEFORE STUDY
     Route: 048
  20. EFFERVESCENT KCL TABLETS [Concomitant]
     Indication: HYPOKALAEMIA
     Dosage: STARTED BEFORE STUDY BEGAN
     Route: 048
  21. HYDROCHLOROTHIAZID [Concomitant]
     Active Substance: HYDROCHLOROTHIAZIDE
     Indication: DIURETIC THERAPY
     Dosage: UNK
     Route: 048
     Dates: start: 20150615, end: 20171012
  22. ADVATE [Suspect]
     Active Substance: ANTIHEMOPHILIC FACTOR, HUMAN RECOMBINANT
     Indication: FACTOR VIII DEFICIENCY
     Dosage: 3000IU (INTERNATIONAL UNIT)AS NEEDED
     Route: 065
     Dates: start: 20100504, end: 20140303
  23. ALLOPURINOL. [Concomitant]
     Active Substance: ALLOPURINOL
     Indication: HYPERURICAEMIA
     Dosage: 300MILLIGRAM1X A DAY
     Route: 048
  24. ADVATE [Suspect]
     Active Substance: ANTIHEMOPHILIC FACTOR, HUMAN RECOMBINANT
     Indication: HAEMORRHAGE
     Dosage: 3000IU (INTERNATIONAL UNIT)AS NEEDED
     Route: 065
     Dates: start: 20100503, end: 20140303
  25. METFORMIN [Concomitant]
     Active Substance: METFORMIN HYDROCHLORIDE
     Indication: DIABETES MELLITUS
     Dosage: STARTED BEFORE STUDY BEGAN
     Route: 048

REACTIONS (2)
  - Embolic stroke [Recovered/Resolved]
  - Muscle haemorrhage [Recovered/Resolved]

NARRATIVE: CASE EVENT DATE: 20140513
